FAERS Safety Report 5240064-9 (Version None)
Quarter: 2007Q1

REPORT INFORMATION
  Report Type: 
  Country: None (occurrence: None)
  Receive Date: 20070216
  Receipt Date: 20070207
  Transmission Date: 20070707
  Serious: Yes (Death, Hospitalization)
  Sender: FDA-Public Use
  Company Number: ES-PFIZER INC-2007009771

PATIENT
  Age: 80 Year
  Sex: Female

DRUGS (6)
  1. BESITRAN [Suspect]
     Indication: DEPRESSION
     Route: 048
  2. SINTROM [Interacting]
     Indication: PROPHYLAXIS
     Route: 048
  3. CAPTOPRIL [Concomitant]
     Route: 048
  4. DIGOXIN [Concomitant]
     Route: 048
  5. ISOSORBIDE MONONITRATE [Concomitant]
     Route: 048
  6. RABEPRAZOLE SODIUM [Concomitant]
     Route: 048

REACTIONS (2)
  - CEREBRAL HAEMORRHAGE [None]
  - DRUG INTERACTION [None]
